FAERS Safety Report 8588026-8 (Version None)
Quarter: 2012Q3

REPORT INFORMATION
  Report Type: 
  Country: None (occurrence: None)
  Receive Date: 20120731
  Receipt Date: 20120718
  Transmission Date: 20120928
  Serious: Yes (Death, Hospitalization)
  Sender: FDA-Public Use
  Company Number: IMP_05943_2012

PATIENT
  Age: 34 Year
  Sex: Female

DRUGS (4)
  1. CLONAZEPAM [Concomitant]
     Indication: PRODUCT USED FOR UNKNOWN INDICATION
     Dosage: (4.5 G 1X ORAL)
     Route: 048
  2. BUPROPION HCL [Suspect]
     Indication: PRODUCT USED FOR UNKNOWN INDICATION
     Dosage: (13.5 G 1X ORAL)
  3. TRAZODONE HYDROCHLORIDE [Suspect]
     Indication: PRODUCT USED FOR UNKNOWN INDICATION
     Dosage: (4.5 G 1X ORAL)
     Route: 048
  4. CITALOPRAM HYDROBROMIDE [Suspect]
     Indication: PRODUCT USED FOR UNKNOWN INDICATION
     Dosage: (1.8 G 1X ORAL)
     Route: 048

REACTIONS (17)
  - CARDIOTOXICITY [None]
  - DEPRESSED LEVEL OF CONSCIOUSNESS [None]
  - PERIPHERAL COLDNESS [None]
  - TOXICITY TO VARIOUS AGENTS [None]
  - BLOOD ETHANOL INCREASED [None]
  - UNRESPONSIVE TO STIMULI [None]
  - ELECTROCARDIOGRAM QRS COMPLEX PROLONGED [None]
  - MULTIPLE DRUG OVERDOSE [None]
  - FLUSHING [None]
  - GENERAL PHYSICAL HEALTH DETERIORATION [None]
  - VENTRICULAR TACHYCARDIA [None]
  - MIOSIS [None]
  - ELECTROCARDIOGRAM QT PROLONGED [None]
  - PULSE ABSENT [None]
  - AREFLEXIA [None]
  - GRAND MAL CONVULSION [None]
  - HYPOTENSION [None]
